FAERS Safety Report 20070797 (Version 1)
Quarter: 2021Q4

REPORT INFORMATION
  Report Type: Spontaneous
  Country: US (occurrence: None)
  Receive Date: 20211115
  Receipt Date: 20211115
  Transmission Date: 20220303
  Serious: No
  Sender: FDA-Public Use
  Company Number: None

PATIENT
  Age: 74 Year
  Weight: 117 kg

DRUGS (8)
  1. ABIRATERONE [Suspect]
     Active Substance: ABIRATERONE
     Indication: Prostate cancer
     Dosage: FREQUENCY : DAILY;?
     Route: 048
     Dates: start: 20181212, end: 20211115
  2. ACETAMINOPHEN [Concomitant]
     Active Substance: ACETAMINOPHEN
  3. BICALUTAMIDE [Concomitant]
     Active Substance: BICALUTAMIDE
  4. PREDNISONE [Concomitant]
     Active Substance: PREDNISONE
  5. IBUPROFEN [Concomitant]
     Active Substance: IBUPROFEN
  6. TAMSULOSIN [Concomitant]
     Active Substance: TAMSULOSIN
  7. Lupron Depot (3-Month) [Concomitant]
  8. DOCETAXEL [Concomitant]
     Active Substance: DOCETAXEL

REACTIONS (1)
  - Disease progression [None]

NARRATIVE: CASE EVENT DATE: 20211115
